FAERS Safety Report 15955746 (Version 1)
Quarter: 2019Q1

REPORT INFORMATION
  Report Type: Spontaneous
  Country: US (occurrence: US)
  Receive Date: 20190212
  Receipt Date: 20190212
  Transmission Date: 20190417
  Serious: Yes (Disabling, Other)
  Sender: FDA-Public Use
  Company Number: None

PATIENT
  Age: 56 Year
  Sex: Female
  Weight: 76.5 kg

DRUGS (1)
  1. DEPAKOTE [Suspect]
     Active Substance: DIVALPROEX SODIUM
     Indication: DIAGNOSTIC PROCEDURE
     Dosage: ?          QUANTITY:1 TABLET(S);?
     Route: 048
     Dates: start: 19990707, end: 19990707

REACTIONS (10)
  - Angina pectoris [None]
  - Tachyarrhythmia [None]
  - Pain of skin [None]
  - Cardiovascular disorder [None]
  - Anxiety [None]
  - Weight increased [None]
  - Paradoxical drug reaction [None]
  - Pain [None]
  - Headache [None]
  - Nervous system disorder [None]

NARRATIVE: CASE EVENT DATE: 19990707
